FAERS Safety Report 12563944 (Version 3)
Quarter: 2016Q3

REPORT INFORMATION
  Report Type: Spontaneous
  Country: GB (occurrence: GB)
  Receive Date: 20160717
  Receipt Date: 20160824
  Transmission Date: 20161109
  Serious: Yes (Hospitalization)
  Sender: FDA-Public Use
  Company Number: GB-JNJFOC-20160706132

PATIENT
  Age: 4 Year
  Sex: Male

DRUGS (1)
  1. CALPOL [Suspect]
     Active Substance: ACETAMINOPHEN
     Indication: ACCIDENTAL EXPOSURE TO PRODUCT
     Dosage: ONCE
     Route: 048
     Dates: start: 20160704, end: 20160704

REACTIONS (3)
  - Failure of child resistant mechanism for pharmaceutical product [Unknown]
  - Toxicity to various agents [Recovered/Resolved]
  - Accidental exposure to product by child [Recovered/Resolved]

NARRATIVE: CASE EVENT DATE: 201607
